FAERS Safety Report 4726897-3 (Version None)
Quarter: 2005Q3

REPORT INFORMATION
  Report Type: 
  Country: None (occurrence: None)
  Receive Date: 20050725
  Receipt Date: 20050725
  Transmission Date: 20060218
  Serious: Yes (Other)
  Sender: FDA-Public Use
  Company Number: None

PATIENT
  Age: 62 Year
  Sex: Male
  Weight: 86.6 kg

DRUGS (1)
  1. OMNIPAQUE 350 [Suspect]
     Indication: DIAGNOSTIC PROCEDURE
     Dosage: 350 MG IV
     Route: 042
     Dates: start: 20050718, end: 20050718

REACTIONS (1)
  - URTICARIA [None]
